FAERS Safety Report 7731204-8 (Version None)
Quarter: 2011Q3

REPORT INFORMATION
  Report Type: 
  Country: None (occurrence: None)
  Receive Date: 20110906
  Receipt Date: 20110831
  Transmission Date: 20111222
  Serious: Yes (Other)
  Sender: FDA-Public Use
  Company Number: DE-ABBOTT-11P-062-0850842-00

PATIENT
  Sex: Male

DRUGS (4)
  1. NOVAMINSULFON [Concomitant]
     Indication: PRODUCT USED FOR UNKNOWN INDICATION
  2. ZOLPIDEM [Concomitant]
     Indication: PRODUCT USED FOR UNKNOWN INDICATION
  3. UNKNOWN MEDICATION [Concomitant]
     Indication: THROMBOSIS PROPHYLAXIS
     Route: 050
  4. HUMIRA [Suspect]
     Indication: PSORIASIS
     Dates: start: 20080401

REACTIONS (2)
  - RENAL FUNCTION TEST ABNORMAL [None]
  - OSTEOARTHRITIS [None]
